FAERS Safety Report 12950619 (Version 2)
Quarter: 2016Q4

REPORT INFORMATION
  Report Type: Report from Study
  Country: US (occurrence: US)
  Receive Date: 20161117
  Receipt Date: 20161128
  Transmission Date: 20170207
  Serious: Yes (Other)
  Sender: FDA-Public Use
  Company Number: US-VIIV HEALTHCARE LIMITED-US2016GSK167034

PATIENT
  Sex: Male

DRUGS (9)
  1. ALEMTUZUMAB [Suspect]
     Active Substance: ALEMTUZUMAB
     Indication: CHRONIC GRANULOMATOUS DISEASE
     Dosage: 1 MG/KG FROM DAY -14 TO DAY -10
     Route: 058
  2. DIPHENHYDRAMINE. [Suspect]
     Active Substance: DIPHENHYDRAMINE
     Indication: PREMEDICATION
  3. ACETAMINOPHEN. [Suspect]
     Active Substance: ACETAMINOPHEN
     Indication: PREMEDICATION
  4. SIROLIMUS. [Suspect]
     Active Substance: SIROLIMUS
     Indication: PROPHYLAXIS AGAINST GRAFT VERSUS HOST DISEASE
     Dosage: INITIATED AT DAY -2 AND TILL DAY +100 IF NO SIGNS OF GVHD
  5. METHYLPREDNISOLONE. [Suspect]
     Active Substance: METHYLPREDNISOLONE
     Indication: PROPHYLAXIS AGAINST GRAFT VERSUS HOST DISEASE
     Dosage: 1 MG/KG, QD (DAY 0 TO +21 IF NO SIGNS OF GVHD)
  6. FLUDARABINE [Suspect]
     Active Substance: FLUDARABINE PHOSPHATE
     Indication: CHRONIC GRANULOMATOUS DISEASE
     Dosage: 30 MG/M2, QD (DAY -8 TO DAY -4)
     Route: 042
  7. MELPHALAN [Suspect]
     Active Substance: MELPHALAN
     Indication: CHRONIC GRANULOMATOUS DISEASE
     Dosage: 140 MG/M2, QD ON DAY -3
     Route: 042
  8. CYCLOSPORINE. [Suspect]
     Active Substance: CYCLOSPORINE
     Indication: PROPHYLAXIS AGAINST GRAFT VERSUS HOST DISEASE
     Dosage: INITIATED AT DAY -2 AND TILL DAY +100 IF NO SIGNS OF GVHD
  9. MARAVIROC [Suspect]
     Active Substance: MARAVIROC
     Indication: PRODUCT USED FOR UNKNOWN INDICATION
     Dosage: DAY -3 TO DAY +30

REACTIONS (4)
  - Adenovirus infection [Recovered/Resolved]
  - Pyrexia [Unknown]
  - Hepatitis [Unknown]
  - Colitis [Unknown]
